FAERS Safety Report 6164629-5 (Version None)
Quarter: 2009Q2

REPORT INFORMATION
  Report Type: 
  Country: None (occurrence: None)
  Receive Date: 20090421
  Receipt Date: 20090407
  Transmission Date: 20091009
  Serious: Yes (Other)
  Sender: FDA-Public Use
  Company Number: ACO_00539_2009

PATIENT
  Age: 28 Year
  Sex: Female

DRUGS (1)
  1. SIRDALUD MR (SIRDALUD MR - TIZANIDINE HYDROCHLORIDE) (NOT SPECIFIED) [Suspect]
     Indication: BACK PAIN
     Dosage: (1 DF BID ORAL)
     Route: 048
     Dates: start: 20071227, end: 20071231

REACTIONS (2)
  - DRUG EXPOSURE DURING PREGNANCY [None]
  - SELECTIVE ABORTION [None]
